FAERS Safety Report 17318557 (Version 1)
Quarter: 2020Q1

REPORT INFORMATION
  Report Type: Spontaneous
  Country: FR (occurrence: FR)
  Receive Date: 20200124
  Receipt Date: 20200124
  Transmission Date: 20200409
  Serious: Yes (Hospitalization)
  Sender: FDA-Public Use
  Company Number: FR-PURDUE-GBR-2020-0074545

PATIENT
  Age: 13 Year
  Sex: Female

DRUGS (1)
  1. SEVREDOL [Suspect]
     Active Substance: MORPHINE
     Indication: POISONING DELIBERATE
     Dosage: 100 MG, UNK (TOTAL) (STRENGTH 10 MG)
     Route: 048
     Dates: start: 20191011

REACTIONS (3)
  - Somnolence [Recovered/Resolved]
  - Poisoning deliberate [Recovered/Resolved]
  - Bradypnoea [Recovered/Resolved]

NARRATIVE: CASE EVENT DATE: 20191011
